FAERS Safety Report 16754005 (Version 1)
Quarter: 2019Q3

REPORT INFORMATION
  Report Type: Spontaneous
  Country: US (occurrence: US)
  Receive Date: 20190829
  Receipt Date: 20190829
  Transmission Date: 20191005
  Serious: Yes (Other)
  Sender: FDA-Public Use
  Company Number: US-FRESENIUS KABI-FK201909269

PATIENT
  Weight: 72 kg

DRUGS (3)
  1. HEPARIN SODIUM INJECTION, USP [Suspect]
     Active Substance: HEPARIN SODIUM
     Indication: ANTICOAGULANT THERAPY
     Dosage: 5,000 UNITS
     Route: 042
     Dates: start: 20190814, end: 20190814
  2. HEPARIN SODIUM INJECTION, USP [Suspect]
     Active Substance: HEPARIN SODIUM
     Dosage: 3,000 UNITS
     Route: 042
     Dates: start: 20190814, end: 20190814
  3. HEPARIN SODIUM INJECTION, USP [Suspect]
     Active Substance: HEPARIN SODIUM
     Dosage: 2,000 UNITS
     Route: 042
     Dates: start: 20190814, end: 20190814

REACTIONS (3)
  - Therapeutic product effect decreased [Unknown]
  - Therapeutic product effect prolonged [Unknown]
  - Haemorrhage [Unknown]

NARRATIVE: CASE EVENT DATE: 20190814
